FAERS Safety Report 6417953-2 (Version None)
Quarter: 2009Q4

REPORT INFORMATION
  Report Type: 
  Country: None (occurrence: None)
  Receive Date: 20091028
  Receipt Date: 20091022
  Transmission Date: 20100525
  Serious: Yes (Other)
  Sender: FDA-Public Use
  Company Number: ES-BAYER-200936048GPV

PATIENT
  Age: 83 Year
  Sex: Male

DRUGS (4)
  1. ADIRO [Suspect]
     Indication: CEREBROVASCULAR ACCIDENT PROPHYLAXIS
     Dosage: TOTAL DAILY DOSE: 100 MG  UNIT DOSE: 100 MG
     Route: 048
     Dates: start: 20081101, end: 20090624
  2. IBUPROFENO [Suspect]
     Indication: PAIN
     Dosage: TOTAL DAILY DOSE: 1.8 G  UNIT DOSE: 0.6 G
     Route: 048
     Dates: start: 20050101, end: 20090624
  3. DEPAKENE [Concomitant]
     Indication: ATONIC SEIZURES
     Dosage: TOTAL DAILY DOSE: 1500 MG  UNIT DOSE: 500 MG
     Route: 048
     Dates: start: 20081101
  4. OMNIC [Concomitant]

REACTIONS (1)
  - TUBULOINTERSTITIAL NEPHRITIS [None]
